FAERS Safety Report 19213917 (Version 1)
Quarter: 2021Q2

REPORT INFORMATION
  Report Type: Report from Study
  Country: US (occurrence: US)
  Receive Date: 20210504
  Receipt Date: 20210504
  Transmission Date: 20210717
  Serious: Yes (Other)
  Sender: FDA-Public Use
  Company Number: US-GILEAD-2021-0526945

PATIENT
  Age: 69 Year
  Sex: Female

DRUGS (29)
  1. AZTREONAM LYSINE [Suspect]
     Active Substance: AZTREONAM LYSINE
     Indication: PSEUDOMONAS INFECTION
  2. PANTOPRAZOLE SODIUM. [Concomitant]
     Active Substance: PANTOPRAZOLE SODIUM
  3. TRIAMTERENE/HYDROCHLOROTHIAZIDE [Concomitant]
     Active Substance: HYDROCHLOROTHIAZIDE\TRIAMTERENE
  4. PROVENTIL [Concomitant]
     Active Substance: ALBUTEROL
  5. AZTREONAM LYSINE [Suspect]
     Active Substance: AZTREONAM LYSINE
     Indication: CYSTIC FIBROSIS
     Dosage: UNK
     Route: 065
  6. MONTELUKAST [Concomitant]
     Active Substance: MONTELUKAST SODIUM
  7. CREON [Concomitant]
     Active Substance: PANCRELIPASE AMYLASE\PANCRELIPASE LIPASE\PANCRELIPASE PROTEASE
  8. ADVAIR HFA [Concomitant]
     Active Substance: FLUTICASONE PROPIONATE\SALMETEROL XINAFOATE
  9. AMLODIPINE [Concomitant]
     Active Substance: AMLODIPINE BESYLATE
  10. CHOICEFUL VITAMINS [Concomitant]
  11. SULFASALAZINE. [Concomitant]
     Active Substance: SULFASALAZINE
  12. ALENDRONATE [Concomitant]
     Active Substance: ALENDRONATE SODIUM
  13. NITROSTAT [Concomitant]
     Active Substance: NITROGLYCERIN
  14. ATROVENT [Concomitant]
     Active Substance: IPRATROPIUM BROMIDE
  15. FERROUS SULFATE. [Concomitant]
     Active Substance: FERROUS SULFATE
  16. ZETIA [Concomitant]
     Active Substance: EZETIMIBE
  17. DOCUSATE SODIUM. [Concomitant]
     Active Substance: DOCUSATE SODIUM
  18. LORAZEPAM. [Concomitant]
     Active Substance: LORAZEPAM
  19. POTASSIUM CHLORIDE. [Concomitant]
     Active Substance: POTASSIUM CHLORIDE
  20. CULTURELLE [Concomitant]
     Active Substance: LACTOBACILLUS RHAMNOSUS
  21. ATORVASTATIN [Concomitant]
     Active Substance: ATORVASTATIN
  22. VITAMIN D NOS [Concomitant]
     Active Substance: VITAMIN D NOS
  23. ASPIRIN [ACETYLSALICYLIC ACID] [Concomitant]
     Active Substance: ASPIRIN
  24. AZITHROMYCIN ANHYDROUS. [Concomitant]
     Active Substance: AZITHROMYCIN ANHYDROUS
  25. LEVALBUTEROL [LEVOSALBUTAMOL] [Concomitant]
     Active Substance: LEVALBUTEROL
  26. KALYDECO [Concomitant]
     Active Substance: IVACAFTOR
  27. PULMOZYME [Concomitant]
     Active Substance: DORNASE ALFA
  28. ESCITALOPRAM [Concomitant]
     Active Substance: ESCITALOPRAM OXALATE
  29. FISH OIL [Concomitant]
     Active Substance: FISH OIL

REACTIONS (3)
  - Rheumatoid arthritis [Unknown]
  - Hypertension [Unknown]
  - Foot fracture [Unknown]

NARRATIVE: CASE EVENT DATE: 20210415
